FAERS Safety Report 16558637 (Version 2)
Quarter: 2019Q3

REPORT INFORMATION
  Report Type: Spontaneous
  Country: None (occurrence: US)
  Receive Date: 20190711
  Receipt Date: 20190719
  Transmission Date: 20191004
  Serious: No
  Sender: FDA-Public Use
  Company Number: US-GW PHARMA-201907USGW2370

PATIENT

DRUGS (2)
  1. EPIDIOLEX [Suspect]
     Active Substance: CANNABIDIOL
     Indication: LENNOX-GASTAUT SYNDROME
     Dosage: 280 MILLIGRAM, BID
     Route: 048
     Dates: start: 20190508
  2. EPIDIOLEX [Suspect]
     Active Substance: CANNABIDIOL
     Dosage: 280 MILLIGRAM, BID
     Route: 048

REACTIONS (1)
  - No adverse event [Unknown]
